FAERS Safety Report 24059735 (Version 2)
Quarter: 2024Q3

REPORT INFORMATION
  Report Type: Report from Study
  Country: US (occurrence: US)
  Receive Date: 20240708
  Receipt Date: 20240807
  Transmission Date: 20241016
  Serious: No
  Sender: ALEXION PHARMACEUTICALS
  Company Number: US-AstraZeneca-CH-00657776A

PATIENT
  Sex: Female

DRUGS (1)
  1. ULTOMIRIS [Suspect]
     Active Substance: RAVULIZUMAB-CWVZ
     Indication: Product used for unknown indication
     Dosage: UNK
     Route: 065

REACTIONS (8)
  - Sleep apnoea syndrome [Unknown]
  - Asthenopia [Unknown]
  - Fall [Unknown]
  - Eye injury [Unknown]
  - Swelling face [Unknown]
  - Eye contusion [Not Recovered/Not Resolved]
  - Diplopia [Unknown]
  - Altered visual depth perception [Unknown]

NARRATIVE: CASE EVENT DATE: 20240601
